FAERS Safety Report 5950422-2 (Version None)
Quarter: 2008Q4

REPORT INFORMATION
  Report Type: 
  Country: None (occurrence: None)
  Receive Date: 20081112
  Receipt Date: 20081104
  Transmission Date: 20090506
  Serious: Yes (Other)
  Sender: FDA-Public Use
  Company Number: JP-MERCK-0810USA03997

PATIENT
  Age: 66 Year
  Sex: Female
  Weight: 55 kg

DRUGS (5)
  1. HYZAAR [Suspect]
     Indication: HYPERTENSION
     Route: 048
     Dates: start: 20070925, end: 20080707
  2. ATELEC [Concomitant]
     Indication: HYPERTENSION
     Route: 048
     Dates: start: 20021105
  3. HOUTTUYNIA [Concomitant]
     Route: 048
     Dates: start: 20030807
  4. JOBS TEARS [Concomitant]
     Route: 048
     Dates: start: 20030807
  5. SICKLE POD SENNA [Concomitant]
     Route: 048
     Dates: start: 20030807

REACTIONS (2)
  - BLOOD CREATININE INCREASED [None]
  - BLOOD URIC ACID INCREASED [None]
